FAERS Safety Report 15244626 (Version 1)
Quarter: 2018Q3

REPORT INFORMATION
  Report Type: Spontaneous
  Country: FR (occurrence: FR)
  Receive Date: 20180806
  Receipt Date: 20180806
  Transmission Date: 20181010
  Serious: Yes (Hospitalization)
  Sender: FDA-Public Use
  Company Number: FR-JNJFOC-20180802324

PATIENT
  Age: 90 Year
  Sex: Female
  Weight: 65 kg

DRUGS (1)
  1. XARELTO [Suspect]
     Active Substance: RIVAROXABAN
     Indication: ATRIAL FIBRILLATION
     Route: 048
     Dates: start: 20180605, end: 20180703

REACTIONS (1)
  - Prothrombin time shortened [Recovering/Resolving]

NARRATIVE: CASE EVENT DATE: 20180703
